FAERS Safety Report 25221048 (Version 1)
Quarter: 2025Q2

REPORT INFORMATION
  Report Type: Spontaneous
  Country: FR (occurrence: FR)
  Receive Date: 20250421
  Receipt Date: 20250421
  Transmission Date: 20250717
  Serious: Yes (Hospitalization)
  Sender: TEVA
  Company Number: None

PATIENT
  Age: 93 Year
  Sex: Female
  Weight: 56 kg

DRUGS (9)
  1. ALPRAZOLAM [Suspect]
     Active Substance: ALPRAZOLAM
     Indication: Anxiety
     Route: 048
     Dates: start: 20250301
  2. MELATONIN [Suspect]
     Active Substance: MELATONIN
     Indication: Insomnia
     Route: 048
     Dates: start: 20250312, end: 20250315
  3. CALCIPARINE [Suspect]
     Active Substance: HEPARIN CALCIUM
     Indication: Thrombosis prophylaxis
     Route: 058
     Dates: start: 20250225
  4. ACEBUTOLOL HYDROCHLORIDE [Concomitant]
     Active Substance: ACEBUTOLOL HYDROCHLORIDE
     Indication: Product used for unknown indication
     Route: 065
  5. AMLODIPINE [Suspect]
     Active Substance: AMLODIPINE BESYLATE
     Indication: Hypertension
     Route: 048
     Dates: start: 20250215
  6. CEFTRIAXONE [Suspect]
     Active Substance: CEFTRIAXONE
     Indication: Pyelonephritis acute
     Route: 051
     Dates: start: 20250218, end: 20250224
  7. AMOXICILLIN [Suspect]
     Active Substance: AMOXICILLIN
     Indication: Pyelonephritis acute
     Route: 048
     Dates: start: 20250224, end: 20250226
  8. HYDROXOCOBALAMIN [Suspect]
     Active Substance: HYDROXOCOBALAMIN
     Indication: Vitamin B12 deficiency
     Route: 051
     Dates: start: 20250314, end: 20250314
  9. CYANOCOBALAMIN [Suspect]
     Active Substance: CYANOCOBALAMIN
     Indication: Vitamin B12 deficiency
     Route: 051
     Dates: start: 20250220, end: 20250220

REACTIONS (1)
  - Dermatitis exfoliative generalised [Not Recovered/Not Resolved]

NARRATIVE: CASE EVENT DATE: 20250315
